FAERS Safety Report 24978619 (Version 3)
Quarter: 2025Q1

REPORT INFORMATION
  Report Type: Report from Study
  Country: GR (occurrence: GR)
  Receive Date: 20250218
  Receipt Date: 20250310
  Transmission Date: 20250409
  Serious: Yes (Hospitalization, Other)
  Sender: ABBVIE
  Company Number: GR-ABBVIE-6037222

PATIENT
  Age: 75 Year
  Sex: Female

DRUGS (8)
  1. CARBIDOPA\LEVODOPA [Suspect]
     Active Substance: CARBIDOPA\LEVODOPA
     Indication: Parkinson^s disease
     Route: 050
     Dates: start: 20240510
  2. CARBIDOPA\LEVODOPA [Suspect]
     Active Substance: CARBIDOPA\LEVODOPA
  3. STALEVO [Concomitant]
     Active Substance: CARBIDOPA\ENTACAPONE\LEVODOPA
     Indication: Product used for unknown indication
     Route: 048
  4. EXELON [Concomitant]
     Active Substance: RIVASTIGMINE TARTRATE
     Indication: Product used for unknown indication
     Dosage: UNIT DOSE: 9.5MG
     Route: 062
  5. Mantomed [Concomitant]
     Indication: Product used for unknown indication
     Route: 048
  6. LOSEC [Concomitant]
     Active Substance: OMEPRAZOLE
     Indication: Product used for unknown indication
     Route: 048
  7. WELLBUTRIN XL [Concomitant]
     Active Substance: BUPROPION HYDROCHLORIDE
     Indication: Product used for unknown indication
     Route: 048
  8. HALOPERIDOL [Suspect]
     Active Substance: HALOPERIDOL
     Indication: Product used for unknown indication
     Route: 065

REACTIONS (18)
  - Cerebral haematoma [Recovered/Resolved]
  - Fall [Recovered/Resolved]
  - Vertigo [Not Recovered/Not Resolved]
  - Schizophrenia [Unknown]
  - Bedridden [Not Recovered/Not Resolved]
  - Hyperkinesia [Unknown]
  - Mobility decreased [Unknown]
  - Hernia [Recovered/Resolved]
  - Organic brain syndrome [Unknown]
  - Diverticular hernia [Recovered/Resolved]
  - General physical health deterioration [Not Recovered/Not Resolved]
  - Ileus [Unknown]
  - Fall [Recovered/Resolved]
  - Balance disorder [Unknown]
  - Drug ineffective [Unknown]
  - Blood potassium decreased [Not Recovered/Not Resolved]
  - Aphasia [Not Recovered/Not Resolved]
  - Refusal of treatment by patient [Not Recovered/Not Resolved]

NARRATIVE: CASE EVENT DATE: 20241101
